FAERS Safety Report 23034297 (Version 3)
Quarter: 2025Q4

REPORT INFORMATION
  Report Type: Report from Study
  Country: CA (occurrence: CA)
  Receive Date: 20231005
  Receipt Date: 20251223
  Transmission Date: 20260117
  Serious: Yes (Other)
  Sender: SANDOZ
  Company Number: CA-002147023-NVSC2023CA054641

PATIENT
  Sex: Female

DRUGS (3)
  1. HYRIMOZ [Suspect]
     Active Substance: ADALIMUMAB-ADAZ
     Indication: Rheumatoid arthritis
     Dosage: 40 MG, Q2W
     Dates: start: 20221116
  2. HYRIMOZ [Suspect]
     Active Substance: ADALIMUMAB-ADAZ
  3. HYRIMOZ [Suspect]
     Active Substance: ADALIMUMAB-ADAZ

REACTIONS (8)
  - Ureteric obstruction [Recovered/Resolved]
  - Female genital tract fistula [Recovered/Resolved]
  - Acne [Recovered/Resolved]
  - Arthralgia [Recovered/Resolved]
  - Hypoaesthesia [Recovered/Resolved]
  - Pruritus [Recovered/Resolved]
  - Injection site pain [Recovered/Resolved]
  - General physical health deterioration [Unknown]
